FAERS Safety Report 11361356 (Version 3)
Quarter: 2015Q3

REPORT INFORMATION
  Report Type: Spontaneous
  Country: BR (occurrence: BR)
  Receive Date: 20150810
  Receipt Date: 20150909
  Transmission Date: 20151125
  Serious: Yes (Hospitalization)
  Sender: FDA-Public Use
  Company Number: BR-SA-2015SA118142

PATIENT
  Age: 19 Year
  Sex: Female
  Weight: 60 kg

DRUGS (4)
  1. TRAMADOL. [Concomitant]
     Active Substance: TRAMADOL
     Route: 065
  2. RIFALDIN [Suspect]
     Active Substance: RIFAMPIN
     Indication: POST PROCEDURAL INFECTION
     Route: 048
     Dates: start: 20150714, end: 20150724
  3. LEVOFLOXACIN. [Suspect]
     Active Substance: LEVOFLOXACIN
     Route: 065
  4. KETOPROFEN. [Concomitant]
     Active Substance: KETOPROFEN
     Route: 065

REACTIONS (6)
  - Gamma-glutamyltransferase increased [Recovered/Resolved]
  - Pruritus [Recovered/Resolved]
  - Hypersensitivity [Recovered/Resolved]
  - Eosinophil count decreased [Recovered/Resolved]
  - Pyrexia [Recovered/Resolved]
  - Rash erythematous [Recovered/Resolved]

NARRATIVE: CASE EVENT DATE: 20150723
